FAERS Safety Report 8842915 (Version 2)
Quarter: 2012Q4

REPORT INFORMATION
  Report Type: 
  Country: SK (occurrence: SK)
  Receive Date: 20121016
  Receipt Date: 20121101
  Transmission Date: 20130627
  Serious: Yes (Death)
  Sender: FDA-Public Use
  Company Number: SK-ELI_LILLY_AND_COMPANY-SK201210003999

PATIENT
  Age: 56 Year
  Sex: Male

DRUGS (13)
  1. FORSTEO [Suspect]
     Indication: OSTEOPOROSIS
     Dosage: 20 ug, qd
     Route: 058
     Dates: start: 20111223, end: 20121007
  2. PREDNISON [Concomitant]
     Dosage: 5 mg, qd
  3. SPIRIVA [Concomitant]
  4. ATROVENT N [Concomitant]
  5. ATIMOS [Concomitant]
     Dosage: 12 ug, UNK
  6. BUDIAIR [Concomitant]
     Dosage: 200 ug, UNK
  7. ERDOMED [Concomitant]
     Dosage: 300 mg, bid
  8. PRESTARIUM A [Concomitant]
     Dosage: 2.5 mg, qd
  9. OMERAZOLE [Concomitant]
  10. OXYGEN [Concomitant]
  11. IVABRADINE HYDROCHLORIDE [Concomitant]
  12. VITACALCIN [Concomitant]
  13. VIGANTOL [Concomitant]

REACTIONS (1)
  - Chronic obstructive pulmonary disease [Fatal]
